FAERS Safety Report 9380220 (Version 1)
Quarter: 2013Q3

REPORT INFORMATION
  Report Type: Spontaneous
  Country: US (occurrence: None)
  Receive Date: 20130701
  Receipt Date: 20130701
  Transmission Date: 20140515
  Serious: Yes (Life-Threatening, Other)
  Sender: FDA-Public Use
  Company Number: None

PATIENT
  Age: 12 Year
  Sex: Female
  Weight: 41.73 kg

DRUGS (1)
  1. SINGULAIR [Suspect]
     Indication: ASTHMA
     Route: 048
     Dates: start: 20050101, end: 20130624

REACTIONS (7)
  - Agitation [None]
  - Depression [None]
  - Anxiety [None]
  - Suicidal ideation [None]
  - Mood swings [None]
  - Abnormal behaviour [None]
  - Personality disorder [None]
